FAERS Safety Report 5243996-0 (Version None)
Quarter: 2007Q1

REPORT INFORMATION
  Report Type: 
  Country: None (occurrence: None)
  Receive Date: 20070222
  Receipt Date: 20070214
  Transmission Date: 20070707
  Serious: Yes (Hospitalization)
  Sender: FDA-Public Use
  Company Number: 2007UW03029

PATIENT
  Age: 26155 Day
  Sex: Male
  Weight: 176 kg

DRUGS (7)
  1. CASODEX [Suspect]
     Indication: PROSTATE CANCER
     Route: 048
     Dates: start: 20070127
  2. TAXOTERE [Suspect]
     Indication: PROSTATE CANCER
     Dates: start: 20070129
  3. LIPITOR [Concomitant]
  4. ATENOLOL [Concomitant]
  5. PRILOSEC [Concomitant]
  6. COMPAZINE [Concomitant]
     Indication: NAUSEA
     Dates: start: 20070129
  7. DECADRON [Concomitant]
     Dosage: 5 MG FOR Q12 AFTER CHEMO

REACTIONS (1)
  - FEBRILE NEUTROPENIA [None]
